FAERS Safety Report 8509329-9 (Version None)
Quarter: 2012Q3

REPORT INFORMATION
  Report Type: 
  Country: None (occurrence: None)
  Receive Date: 20120713
  Receipt Date: 20111104
  Transmission Date: 20120928
  Serious: No
  Sender: FDA-Public Use
  Company Number: US-MUTUAL PHARMACEUTICAL COMPANY, INC.-TMDL20110002

PATIENT
  Age: 18 Year
  Sex: Female
  Weight: 56.75 kg

DRUGS (3)
  1. IMPLANON [Suspect]
     Indication: CONTRACEPTION
     Route: 059
     Dates: start: 20110407, end: 20110407
  2. TRAMADOL HCL [Suspect]
     Indication: MENORRHAGIA
     Route: 065
     Dates: start: 20110101
  3. IBUPROFEN [Concomitant]
     Indication: MENORRHAGIA
     Route: 065
     Dates: start: 20110101

REACTIONS (2)
  - OFF LABEL USE [None]
  - VOMITING [None]
